FAERS Safety Report 8790023 (Version 1)
Quarter: 2012Q4

REPORT INFORMATION
  Report Type: 
  Country: US (occurrence: US)
  Receive Date: 20120917
  Receipt Date: 20120921
  Transmission Date: 20130627
  Serious: Yes (Other)
  Sender: FDA-Public Use
  Company Number: US-VERTEX PHARMACEUTICAL INC.-AE-2012-010344

PATIENT
  Age: 48 Year
  Sex: Female
  Weight: 91 kg

DRUGS (19)
  1. VX-950 [Suspect]
     Indication: HEPATITIS C
     Dosage: 750 mg, tid
     Route: 048
  2. PEGASYS [Concomitant]
     Indication: HEPATITIS C
     Dosage: 180 mcg/m
  3. RIBAPAK [Concomitant]
     Indication: HEPATITIS C
     Dosage: 1200 mg, qd
  4. XANAX [Concomitant]
     Dosage: 0.25 mg, UNK
  5. LACTULOSE [Concomitant]
     Dosage: 10 gm/15
  6. ZYRTEC-D [Concomitant]
     Dosage: 5-120mg
  7. LYRICA [Concomitant]
     Dosage: 100 mg, UNK
  8. REGLAN                             /00041901/ [Concomitant]
  9. TRAZODONE [Concomitant]
     Dosage: 50 mg, UNK
  10. OMEPRAZOLE [Concomitant]
     Dosage: 20 mg, UNK
  11. FENTANYL [Concomitant]
     Dosage: 50mcg/hr
  12. ONDANSETRON [Concomitant]
     Dosage: 4 mg, UNK
  13. DICYCLOMINE                        /00068601/ [Concomitant]
     Dosage: 20 mg, UNK
  14. LEVOTHYROXINE [Concomitant]
     Dosage: 50 ?g, UNK
  15. ZANAFLEX [Concomitant]
     Dosage: 4 mg, UNK
  16. HYDROXYZ HCL [Concomitant]
     Dosage: 10 mg, UNK
  17. CYCLOBENZAPRINE [Concomitant]
     Dosage: 15 mg, UNK
  18. XIFAXAN [Concomitant]
     Dosage: 200 mg, UNK
  19. PERCOCET                           /00446701/ [Concomitant]
     Dosage: 7.5-325M

REACTIONS (16)
  - Anaemia [Unknown]
  - Blood thyroid stimulating hormone increased [Unknown]
  - Dizziness [Unknown]
  - Chest pain [Unknown]
  - Throat tightness [Unknown]
  - Myalgia [Unknown]
  - White blood cell count decreased [Unknown]
  - Dyspnoea [Unknown]
  - Dysphagia [Unknown]
  - Ear discomfort [Unknown]
  - Oral pain [Unknown]
  - Stomatitis [Unknown]
  - Lethargy [Unknown]
  - Rash [Unknown]
  - Pruritus [Unknown]
  - Nausea [Unknown]
